FAERS Safety Report 8343709-X (Version None)
Quarter: 2012Q2

REPORT INFORMATION
  Report Type: 
  Country: None (occurrence: None)
  Receive Date: 20120508
  Receipt Date: 20120208
  Transmission Date: 20120825
  Serious: No
  Sender: FDA-Public Use
  Company Number: US-BAUSCH-2012BL000903

PATIENT
  Sex: Female

DRUGS (3)
  1. LOTEMAX [Suspect]
     Indication: EYE SWELLING
     Route: 061
     Dates: start: 20111102
  2. LOTEMAX [Suspect]
     Indication: EYELIDS PRURITUS
     Route: 061
     Dates: start: 20111102
  3. LOTEMAX [Suspect]
     Indication: OFF LABEL USE
     Route: 061
     Dates: start: 20111102

REACTIONS (5)
  - CONDITION AGGRAVATED [None]
  - DRUG INEFFECTIVE FOR UNAPPROVED INDICATION [None]
  - EYELIDS PRURITUS [None]
  - EYE SWELLING [None]
  - INCORRECT ROUTE OF DRUG ADMINISTRATION [None]
